FAERS Safety Report 18205085 (Version 1)
Quarter: 2020Q3

REPORT INFORMATION
  Report Type: Spontaneous
  Country: US (occurrence: US)
  Receive Date: 20200828
  Receipt Date: 20200828
  Transmission Date: 20201103
  Serious: No
  Sender: FDA-Public Use
  Company Number: US-NOVITIUMPHARMA-2020USNVP00020

PATIENT
  Age: 29 Year
  Sex: Female

DRUGS (3)
  1. BEVACIZUMAB. [Concomitant]
     Active Substance: BEVACIZUMAB
     Indication: CHOROIDAL NEOVASCULARISATION
     Route: 031
  2. PREDNISONE. [Suspect]
     Active Substance: PREDNISONE
     Indication: CHORIORETINITIS
  3. ACETAZOLAMIDE. [Concomitant]
     Active Substance: ACETAZOLAMIDE
     Indication: PAPILLOEDEMA
     Route: 048

REACTIONS (1)
  - Weight increased [Unknown]
